FAERS Safety Report 9355676 (Version 1)
Quarter: 2013Q2

REPORT INFORMATION
  Report Type: Spontaneous
  Country: US (occurrence: None)
  Receive Date: 20130618
  Receipt Date: 20130618
  Transmission Date: 20140414
  Serious: Yes (Other)
  Sender: FDA-Public Use
  Company Number: None

PATIENT
  Age: 78 Year
  Sex: Male
  Weight: 103.4 kg

DRUGS (1)
  1. B BRAUN 0.25% BUPIVICAINE 0.75% DEXTROSE [Suspect]
     Dosage: 2 ML, IT
     Dates: start: 20130617, end: 20130617

REACTIONS (2)
  - Drug ineffective [None]
  - Incision site pain [None]
